FAERS Safety Report 13224457 (Version 4)
Quarter: 2017Q1

REPORT INFORMATION
  Report Type: Spontaneous
  Country: MX (occurrence: MX)
  Receive Date: 20170212
  Receipt Date: 20170310
  Transmission Date: 20170428
  Serious: Yes (Death)
  Sender: FDA-Public Use
  Company Number: PHHY2017MX022040

PATIENT
  Sex: Female
  Weight: 65 kg

DRUGS (3)
  1. ENTRESTO [Suspect]
     Active Substance: SACUBITRIL\VALSARTAN
     Indication: CARDIAC FAILURE CHRONIC
     Dosage: 50 MG, Q12H
     Route: 048
     Dates: start: 201609
  2. MICCIL [Concomitant]
     Indication: PERIPHERAL VENOUS DISEASE
     Route: 065
  3. VARITON [Concomitant]
     Indication: PERIPHERAL VENOUS DISEASE
     Route: 065

REACTIONS (2)
  - Cardiogenic shock [Fatal]
  - Septic shock [Fatal]
